FAERS Safety Report 9492512 (Version 3)
Quarter: 2013Q3

REPORT INFORMATION
  Report Type: Spontaneous
  Country: GB (occurrence: GB)
  Receive Date: 20130830
  Receipt Date: 20130905
  Transmission Date: 20140515
  Serious: Yes (Other)
  Sender: FDA-Public Use
  Company Number: GB-VERTEX PHARMACEUTICALS INC-2013-008378

PATIENT
  Age: 42 Year
  Sex: Male
  Weight: 87.7 kg

DRUGS (8)
  1. INCIVO [Suspect]
     Indication: HEPATITIS C
     Dosage: 750 MG, TID
     Route: 048
     Dates: start: 20130415, end: 20130707
  2. PEGASYS [Concomitant]
     Indication: HEPATITIS C
     Dosage: DOSAGE FORM: UNSPECIFIED
     Route: 065
     Dates: start: 20130415
  3. RIBAVIRIN [Concomitant]
     Indication: HEPATITIS C
     Dosage: DOSAGE FORM: UNSPECIFIED
     Route: 065
     Dates: start: 20130415
  4. ZOPICLONE [Concomitant]
     Indication: INSOMNIA
     Dosage: DOSAGE FORM: UNSPECIFIED, MON,TUES,WED, THURS
     Route: 065
     Dates: start: 20130415
  5. TRAMADOL [Concomitant]
     Indication: PAIN
     Dosage: DOSAGE FORM: UNSPECIFIED, MODIFIED RELEASE (MR) DAILY
     Route: 065
     Dates: start: 20130415
  6. METHADONE [Concomitant]
     Indication: OPIATES
     Dosage: DOSAGE FORM: UNSPECIFIED, 34-44 MLS SELF REDUCTING
     Route: 065
     Dates: start: 20130415
  7. LEVOTHYROXINE [Concomitant]
     Indication: HYPOTHYROIDISM
     Dosage: DOSAGE FORM: UNSPECIFIED
     Route: 065
     Dates: start: 20130415
  8. CALOGEN [Concomitant]
     Indication: MEDICAL DIET
     Dosage: DOSAGE FORM: UNSPECIFIED, PRN
     Route: 065
     Dates: start: 20130415

REACTIONS (1)
  - Treatment noncompliance [Recovered/Resolved]
